FAERS Safety Report 9370759 (Version 1)
Quarter: 2013Q2

REPORT INFORMATION
  Report Type: Spontaneous
  Country: IL (occurrence: US)
  Receive Date: 20130626
  Receipt Date: 20130626
  Transmission Date: 20140414
  Serious: No
  Sender: FDA-Public Use
  Company Number: US-TARO-2013P1006020

PATIENT
  Age: 70 Year
  Sex: Female
  Weight: 70.31 kg

DRUGS (11)
  1. ACETAZOLAMIDE [Suspect]
     Route: 048
     Dates: start: 20130401
  2. ACETAZOLAMIDE [Suspect]
     Indication: GLAUCOMA
     Route: 048
     Dates: start: 20130401
  3. ALPHAGAN DROPS [Concomitant]
     Route: 047
  4. MAXIDEX DROPS [Concomitant]
     Route: 047
  5. VIGAMOX DROPS [Concomitant]
     Route: 047
  6. MURO DROPS [Concomitant]
     Route: 047
  7. GANFORT DROPS [Concomitant]
     Route: 047
  8. SIMVASTATIN [Concomitant]
  9. VITAMIN D [Concomitant]
  10. URAMOX [Suspect]
  11. URAMOX [Suspect]
     Indication: GLAUCOMA

REACTIONS (3)
  - Hypoaesthesia [Not Recovered/Not Resolved]
  - Pollakiuria [Not Recovered/Not Resolved]
  - Paraesthesia [Recovered/Resolved]
